FAERS Safety Report 9209140 (Version 1)
Quarter: 2013Q2

REPORT INFORMATION
  Report Type: Spontaneous
  Country: US (occurrence: US)
  Receive Date: 20130404
  Receipt Date: 20130404
  Transmission Date: 20140414
  Serious: Yes (Hospitalization, Other)
  Sender: FDA-Public Use
  Company Number: PHEH2013US007428

PATIENT
  Sex: Female

DRUGS (3)
  1. GILENYA [Suspect]
     Indication: MULTIPLE SCLEROSIS
     Dosage: 0.5 MG, DAILY
     Route: 048
     Dates: start: 201102
  2. GILENYA [Suspect]
     Dosage: 0.5 MG, QOD
     Route: 048
     Dates: start: 201108
  3. GILENYA [Suspect]
     Dosage: 0.5 MG, Q48H

REACTIONS (21)
  - Hypersensitivity [Unknown]
  - Arteriosclerosis [Unknown]
  - Poor peripheral circulation [Recovered/Resolved]
  - Device related infection [Recovering/Resolving]
  - Abasia [Recovering/Resolving]
  - Blepharitis [Unknown]
  - Eye discharge [Not Recovered/Not Resolved]
  - Eyelid oedema [Not Recovered/Not Resolved]
  - Foreign body sensation in eyes [Not Recovered/Not Resolved]
  - Vision blurred [Not Recovered/Not Resolved]
  - Discomfort [Unknown]
  - Fatigue [Unknown]
  - Thought blocking [Unknown]
  - Gait disturbance [Recovering/Resolving]
  - Cardiac discomfort [Recovered/Resolved]
  - Fall [Unknown]
  - Asthenopia [Unknown]
  - Eye pain [Unknown]
  - Inflammation [Unknown]
  - Asthenia [Unknown]
  - Inappropriate schedule of drug administration [Unknown]
